FAERS Safety Report 7491178-4 (Version None)
Quarter: 2011Q2

REPORT INFORMATION
  Report Type: 
  Country: None (occurrence: None)
  Receive Date: 20110519
  Receipt Date: 20110510
  Transmission Date: 20111010
  Serious: Yes (Other)
  Sender: FDA-Public Use
  Company Number: CN-ASTRAZENECA-2011SE24806

PATIENT
  Age: 52 Year
  Sex: Female

DRUGS (5)
  1. CARBOPLATIN [Concomitant]
     Dosage: 500 MG DAY 1 FOR 2 HOURS
     Route: 041
     Dates: start: 20080826
  2. GEFITINIB [Suspect]
     Route: 048
     Dates: start: 20070504
  3. GEMZAR [Suspect]
     Route: 041
  4. GEMZAR [Suspect]
     Dosage: 1700 MG ON DAY 1 FOR 2 HOURS
     Route: 041
     Dates: start: 20080826
  5. GEMZAR [Suspect]
     Dosage: 1700 MG ON DAY 8 FOR 2 HOURS
     Route: 041

REACTIONS (10)
  - NAUSEA [None]
  - GAMMA-GLUTAMYLTRANSFERASE INCREASED [None]
  - ALANINE AMINOTRANSFERASE INCREASED [None]
  - MUSCULOSKELETAL PAIN [None]
  - BACK PAIN [None]
  - FATIGUE [None]
  - ASPARTATE AMINOTRANSFERASE INCREASED [None]
  - RASH [None]
  - BLOOD ALKALINE PHOSPHATASE INCREASED [None]
  - DIZZINESS [None]
